FAERS Safety Report 9239952 (Version 2)
Quarter: 2013Q2

REPORT INFORMATION
  Report Type: Spontaneous
  Country: US (occurrence: US)
  Receive Date: 20130418
  Receipt Date: 20130628
  Transmission Date: 20140414
  Serious: Yes (Death, Other)
  Sender: FDA-Public Use
  Company Number: US-B.I. PHARMACEUTICALS,INC./RIDGEFIELD-2013-BI-09849BP

PATIENT
  Age: 68 Year
  Sex: Male
  Weight: 99.79 kg

DRUGS (4)
  1. PRADAXA [Suspect]
     Indication: ANTICOAGULANT THERAPY
     Dosage: 300 MG
     Route: 048
     Dates: start: 20110425, end: 20120426
  2. PRADAXA [Suspect]
     Indication: ATRIAL FIBRILLATION
  3. LIPITOR [Concomitant]
  4. ATENOLOL [Concomitant]
     Indication: CORONARY ARTERY DISEASE

REACTIONS (4)
  - Haematoma [Fatal]
  - Hypotension [Unknown]
  - Road traffic accident [Unknown]
  - Ventricular tachycardia [Unknown]
